FAERS Safety Report 5627206-8 (Version None)
Quarter: 2008Q1

REPORT INFORMATION
  Report Type: 
  Country: None (occurrence: None)
  Receive Date: 20080212
  Receipt Date: 20080212
  Transmission Date: 20080703
  Serious: Yes (Other)
  Sender: FDA-Public Use
  Company Number: None

PATIENT
  Age: 34 Year
  Sex: Female
  Weight: 65.7716 kg

DRUGS (1)
  1. SULFASALAZINE [Suspect]
     Indication: INFLAMMATORY BOWEL DISEASE
     Dosage: 500MG TABLET, 2 TWICE A DAY PO
     Route: 048
     Dates: start: 20080126, end: 20080205

REACTIONS (3)
  - MUSCULOSKELETAL STIFFNESS [None]
  - PYREXIA [None]
  - RASH [None]
